FAERS Safety Report 8024745-X (Version None)
Quarter: 2012Q1

REPORT INFORMATION
  Report Type: 
  Country: None (occurrence: None)
  Receive Date: 20120105
  Receipt Date: 20111223
  Transmission Date: 20120608
  Serious: Yes (Hospitalization)
  Sender: FDA-Public Use
  Company Number: US-ACTELION-A-NJ2011-58868

PATIENT

DRUGS (6)
  1. VENTAVIS [Suspect]
     Indication: PULMONARY ARTERIAL HYPERTENSION
     Dosage: UNK
     Route: 055
     Dates: start: 20111205
  2. NITROGLYCERIN [Concomitant]
  3. CORTICOSTEROIDS [Suspect]
  4. LETAIRIS [Concomitant]
  5. COUMADIN [Concomitant]
  6. OXYGEN [Concomitant]

REACTIONS (1)
  - SPINAL FRACTURE [None]
